FAERS Safety Report 10181886 (Version 1)
Quarter: 2014Q2

REPORT INFORMATION
  Report Type: Spontaneous
  Country: US (occurrence: US)
  Receive Date: 20140519
  Receipt Date: 20140519
  Transmission Date: 20141212
  Serious: No
  Sender: FDA-Public Use
  Company Number: US-ASTRAZENECA-2014SE16357

PATIENT
  Age: 74 Year
  Sex: Female
  Weight: 72.6 kg

DRUGS (7)
  1. ATACAND [Suspect]
     Indication: BLOOD PRESSURE ABNORMAL
     Route: 048
     Dates: start: 2009
  2. ATACAND [Suspect]
     Indication: BLOOD PRESSURE ABNORMAL
     Route: 048
     Dates: start: 201402
  3. ATACAND [Suspect]
     Indication: BLOOD PRESSURE ABNORMAL
     Dosage: INCREASED HER ATACAND TO 12 MG
     Route: 048
  4. ASPIRIN [Concomitant]
     Indication: HEADACHE
     Dosage: UNK UNK
     Dates: start: 201402
  5. B2 [Concomitant]
     Indication: HEADACHE
  6. TUMS [Concomitant]
     Dosage: UNKNOWN UNK
  7. OTHER (UNSPECIFIED) [Concomitant]
     Indication: OESOPHAGEAL DISORDER
     Dosage: UNKNOWN UNK

REACTIONS (8)
  - Peripheral swelling [Recovered/Resolved]
  - Headache [Recovered/Resolved]
  - Headache [Unknown]
  - Hypertension [Recovered/Resolved]
  - Adverse event [Unknown]
  - Intentional product misuse [Unknown]
  - Intercepted drug dispensing error [Unknown]
  - Drug ineffective [Unknown]
